FAERS Safety Report 9546823 (Version 2)
Quarter: 2013Q4

REPORT INFORMATION
  Report Type: Report from Study
  Country: GB (occurrence: GB)
  Receive Date: 20130924
  Receipt Date: 20131016
  Transmission Date: 20140711
  Serious: Yes (Hospitalization)
  Sender: FDA-Public Use
  Company Number: GB-BRISTOL-MYERS SQUIBB COMPANY-19417211

PATIENT
  Age: 66 Year
  Sex: Male
  Weight: 88 kg

DRUGS (3)
  1. IPILIMUMAB [Suspect]
     Indication: SMALL CELL LUNG CANCER
     Dosage: LAST DOSE: 20AUG2013
     Dates: start: 20130820
  2. CARBOPLATIN [Suspect]
     Indication: SMALL CELL LUNG CANCER
     Dosage: LAST DOSE: 20AUG2013
     Dates: start: 20130820
  3. ETOPOSIDE [Suspect]
     Indication: SMALL CELL LUNG CANCER
     Dosage: LAST DOSE: 20AUG2013
     Dates: start: 20130820

REACTIONS (1)
  - Infection [Not Recovered/Not Resolved]
